FAERS Safety Report 6742428-0 (Version None)
Quarter: 2010Q2

REPORT INFORMATION
  Report Type: 
  Country: None (occurrence: None)
  Receive Date: 20100526
  Receipt Date: 20100519
  Transmission Date: 20101027
  Serious: Yes (Hospitalization)
  Sender: FDA-Public Use
  Company Number: PHHO2010NZ07529

PATIENT
  Sex: Female
  Weight: 50.9 kg

DRUGS (2)
  1. ZOLEDRONATE T29581+ [Suspect]
     Indication: METASTATIC RENAL CELL CARCINOMA
     Dosage: 3 MG
     Route: 042
     Dates: start: 20100224
  2. AFINITOR [Suspect]
     Indication: METASTATIC RENAL CELL CARCINOMA
     Dosage: 10 MG / DAY
     Route: 048
     Dates: start: 20100224, end: 20100518

REACTIONS (6)
  - DEHYDRATION [None]
  - DYSGEUSIA [None]
  - FATIGUE [None]
  - GLOMERULAR FILTRATION RATE DECREASED [None]
  - HYPOPHAGIA [None]
  - WEIGHT DECREASED [None]
